FAERS Safety Report 15424172 (Version 2)
Quarter: 2018Q3

REPORT INFORMATION
  Report Type: Report from Study
  Country: BE (occurrence: BE)
  Receive Date: 20180925
  Receipt Date: 20180927
  Transmission Date: 20181010
  Serious: Yes (Death)
  Sender: FDA-Public Use
  Company Number: PHHY2018BE107499

PATIENT
  Age: 79 Year
  Sex: Male

DRUGS (1)
  1. ACLASTA [Suspect]
     Active Substance: ZOLEDRONIC ACID
     Indication: PRODUCT USED FOR UNKNOWN INDICATION
     Dosage: 1 DF, Q12MO
     Route: 042
     Dates: start: 20171026, end: 20171026

REACTIONS (1)
  - Death [Fatal]

NARRATIVE: CASE EVENT DATE: 20180827
